FAERS Safety Report 8020839-3 (Version None)
Quarter: 2012Q1

REPORT INFORMATION
  Report Type: 
  Country: None (occurrence: None)
  Receive Date: 20120104
  Receipt Date: 20111219
  Transmission Date: 20120608
  Serious: No
  Sender: FDA-Public Use
  Company Number: US-BIOGENIDEC-2011BI049123

PATIENT
  Age: 48 Year
  Sex: Female
  Weight: 52 kg

DRUGS (5)
  1. VIVELLE-DOT [Concomitant]
     Indication: PRODUCT USED FOR UNKNOWN INDICATION
  2. AMPYRA [Concomitant]
     Dates: start: 20111226
  3. PROMETRIUM [Concomitant]
     Indication: PRODUCT USED FOR UNKNOWN INDICATION
  4. AMPYRA [Concomitant]
     Indication: GAIT DISTURBANCE
     Route: 048
     Dates: start: 20111217, end: 20111217
  5. AVONEX [Suspect]
     Indication: PRODUCT USED FOR UNKNOWN INDICATION
     Route: 030
     Dates: start: 20111101, end: 20111216

REACTIONS (16)
  - MUSCULOSKELETAL DISORDER [None]
  - CHEST PAIN [None]
  - DYSPNOEA [None]
  - DISORIENTATION [None]
  - PALPITATIONS [None]
  - URTICARIA [None]
  - DIZZINESS [None]
  - VISION BLURRED [None]
  - FALL [None]
  - FEELING ABNORMAL [None]
  - ERYTHEMA [None]
  - HEADACHE [None]
  - CONFUSIONAL STATE [None]
  - LOSS OF CONTROL OF LEGS [None]
  - PAIN [None]
  - NAUSEA [None]
